FAERS Safety Report 17277247 (Version 5)
Quarter: 2022Q4

REPORT INFORMATION
  Report Type: Report from Study
  Country: ES (occurrence: ES)
  Receive Date: 20200116
  Receipt Date: 20221003
  Transmission Date: 20230112
  Serious: Yes (Hospitalization)
  Sender: FDA-Public Use
  Company Number: ES-JNJFOC-20200116288

PATIENT
  Age: 70 Year
  Sex: Female
  Weight: 84.7 kg

DRUGS (18)
  1. ERDAFITINIB [Suspect]
     Active Substance: ERDAFITINIB
     Indication: Transitional cell carcinoma
     Route: 048
     Dates: start: 20190923, end: 20200108
  2. ACETAMINOPHEN [Concomitant]
     Active Substance: ACETAMINOPHEN
     Indication: Pelvic pain
     Dates: start: 201909
  3. ACETAMINOPHEN [Concomitant]
     Active Substance: ACETAMINOPHEN
     Indication: Abdominal pain
     Dates: start: 20191214
  4. ACETAMINOPHEN [Concomitant]
     Active Substance: ACETAMINOPHEN
     Dates: start: 20200109
  5. LORAZEPAM [Concomitant]
     Active Substance: LORAZEPAM
     Indication: Anxiety
     Dates: start: 201901
  6. FUROSEMIDE [Concomitant]
     Active Substance: FUROSEMIDE
     Indication: Prophylaxis
     Dates: start: 201907
  7. FORTASEC                           /00384301/ [Concomitant]
     Indication: Diarrhoea
     Dates: start: 20190928
  8. OMEPRAZOLE [Concomitant]
     Active Substance: OMEPRAZOLE
     Indication: Gastrointestinal disorder therapy
     Dates: start: 20191118
  9. LOSARTAN POTASSIUM [Concomitant]
     Active Substance: LOSARTAN POTASSIUM
     Indication: Hypertension
     Dates: start: 20191204
  10. LINEZOLID [Concomitant]
     Active Substance: LINEZOLID
     Indication: Pneumonia
     Dates: start: 20191213
  11. LINEZOLID [Concomitant]
     Active Substance: LINEZOLID
     Dates: start: 20191214
  12. DIPRODERM                          /00008504/ [Concomitant]
     Indication: Diarrhoea
     Dates: start: 20191214
  13. IPRATROPIUM BROMIDE [Concomitant]
     Active Substance: IPRATROPIUM BROMIDE
     Indication: Diarrhoea
     Dates: start: 20191214
  14. MYCOSTATIN [Concomitant]
     Active Substance: NYSTATIN
     Indication: Mucosal inflammation
     Dates: start: 20191214
  15. ULTRA LEVURA                       /00243701/ [Concomitant]
     Indication: Diarrhoea
     Dates: start: 20191214
  16. CAPTOPRIL [Concomitant]
     Active Substance: CAPTOPRIL
     Indication: Diarrhoea
     Dates: start: 20191214
  17. ALPROZAM [Concomitant]
     Indication: Anxiety
     Dates: start: 20191214
  18. NEXIUM [Concomitant]
     Active Substance: ESOMEPRAZOLE MAGNESIUM
     Indication: Gastric disorder
     Dates: start: 20191214

REACTIONS (1)
  - Diarrhoea [Recovered/Resolved]

NARRATIVE: CASE EVENT DATE: 20200109
